FAERS Safety Report 15800675 (Version 1)
Quarter: 2019Q1

REPORT INFORMATION
  Report Type: Spontaneous
  Country: US (occurrence: US)
  Receive Date: 20190109
  Receipt Date: 20190109
  Transmission Date: 20190417
  Serious: No
  Sender: FDA-Public Use
  Company Number: US-BIOGEN-2019BI00678614

PATIENT
  Age: 62 Year
  Sex: Female

DRUGS (1)
  1. TECFIDERA [Suspect]
     Active Substance: DIMETHYL FUMARATE
     Indication: PRODUCT USED FOR UNKNOWN INDICATION
     Route: 048
     Dates: start: 201812

REACTIONS (8)
  - Night sweats [Unknown]
  - Influenza like illness [Unknown]
  - Diarrhoea [Unknown]
  - Joint swelling [Unknown]
  - Paraesthesia [Unknown]
  - Headache [Unknown]
  - Swollen tongue [Unknown]
  - Rash papular [Unknown]

NARRATIVE: CASE EVENT DATE: 20181221
